FAERS Safety Report 13646614 (Version 2)
Quarter: 2017Q3

REPORT INFORMATION
  Report Type: Spontaneous
  Country: US (occurrence: US)
  Receive Date: 20170613
  Receipt Date: 20170717
  Transmission Date: 20171127
  Serious: No
  Sender: FDA-Public Use
  Company Number: US-PFIZER INC-2014051057

PATIENT
  Age: 69 Year
  Sex: Female

DRUGS (3)
  1. LYRICA [Suspect]
     Active Substance: PREGABALIN
     Indication: NEURALGIA
     Dosage: 75 MG, 3X/DAY
     Dates: start: 200508
  2. LYRICA [Suspect]
     Active Substance: PREGABALIN
     Indication: TRIGEMINAL NEURALGIA
  3. TRAMADOL. [Concomitant]
     Active Substance: TRAMADOL
     Indication: OROPHARYNGEAL PAIN
     Dosage: UNK
     Dates: start: 2007, end: 2007

REACTIONS (1)
  - Drug ineffective [Not Recovered/Not Resolved]
